FAERS Safety Report 6654075-X (Version None)
Quarter: 2010Q1

REPORT INFORMATION
  Report Type: 
  Country: None (occurrence: None)
  Receive Date: 20100326
  Receipt Date: 20100317
  Transmission Date: 20100710
  Serious: Yes (Other)
  Sender: FDA-Public Use
  Company Number: PHHY2010GR16055

PATIENT
  Age: 75 Year
  Sex: Male

DRUGS (1)
  1. EXFORGE [Suspect]
     Dosage: 160/5 MG DAILY
     Route: 048

REACTIONS (1)
  - PEMPHIGUS [None]
